FAERS Safety Report 19079118 (Version 2)
Quarter: 2022Q1

REPORT INFORMATION
  Report Type: Spontaneous
  Country: FR (occurrence: FR)
  Receive Date: 20210331
  Receipt Date: 20220331
  Transmission Date: 20220424
  Serious: Yes (Hospitalization)
  Sender: FDA-Public Use
  Company Number: None

PATIENT
  Age: 48 Year
  Sex: Male
  Weight: 83 kg

DRUGS (7)
  1. DOXORUBICIN [Suspect]
     Active Substance: DOXORUBICIN
     Indication: Follicular lymphoma
     Dosage: 100 MG, I TOTAL, DOXORUBICINE TEVA
     Route: 042
     Dates: start: 20210224, end: 20210224
  2. METHOTREXATE [Suspect]
     Active Substance: METHOTREXATE
     Indication: Follicular lymphoma
     Dosage: 15 MG, 1 TOTAL
     Route: 037
     Dates: start: 20210224, end: 20210224
  3. VINCRISTINE [Suspect]
     Active Substance: VINCRISTINE
     Indication: Follicular lymphoma
     Dosage: 2 MG, 1 TOTAL, VINCRISTINE SULFATE
     Route: 041
     Dates: start: 20210224, end: 20210224
  4. SOLU-MEDROL [Suspect]
     Active Substance: METHYLPREDNISOLONE SODIUM SUCCINATE
     Indication: Follicular lymphoma
     Dosage: 80 MG/ DAY
     Route: 042
     Dates: start: 20210223, end: 20210228
  5. CYCLOPHOSPHAMIDE [Suspect]
     Active Substance: CYCLOPHOSPHAMIDE
     Indication: Follicular lymphoma
     Dosage: 1500 MG, 1 TOTAL
     Route: 041
     Dates: start: 20210224, end: 20210224
  6. OBINUTUZUMAB [Suspect]
     Active Substance: OBINUTUZUMAB
     Indication: Follicular lymphoma
     Dosage: 100 MG ON DAY 1; 900 MG ON D2; GAZYVARO 1000 MG, CONCENTRATE FOR SOLUTION FOR INFUSION
     Route: 041
     Dates: start: 20210223, end: 20210224
  7. PREDNISOLONE [Suspect]
     Active Substance: PREDNISOLONE
     Indication: Follicular lymphoma
     Dosage: 40 MG, 1 TOTAL
     Route: 037
     Dates: start: 20210224, end: 20210224

REACTIONS (3)
  - Agitation [Recovered/Resolved]
  - Disorientation [Recovered/Resolved]
  - Confusional state [Recovered/Resolved]

NARRATIVE: CASE EVENT DATE: 20210302
